FAERS Safety Report 9074914 (Version 1)
Quarter: 2013Q1

REPORT INFORMATION
  Report Type: Report from Study
  Country: US (occurrence: US)
  Receive Date: 20130129
  Receipt Date: 20130129
  Transmission Date: 20140127
  Serious: Yes (Hospitalization, Other)
  Sender: FDA-Public Use
  Company Number: US-ABBOTT-13P-163-1039737-00

PATIENT
  Age: 31 Year
  Sex: Female

DRUGS (7)
  1. HUMIRA [Suspect]
     Indication: CROHN^S DISEASE
  2. CIMZIA [Suspect]
     Indication: PRODUCT USED FOR UNKNOWN INDICATION
  3. NEXIUM [Concomitant]
     Indication: GASTROOESOPHAGEAL REFLUX DISEASE
  4. TOPAMAX [Concomitant]
     Indication: MIGRAINE
  5. DOXEPIN [Concomitant]
     Indication: INSOMNIA
     Dosage: DAILY
  6. CELEXA [Concomitant]
     Indication: ANXIETY
     Dosage: DAILY
  7. CELEXA [Concomitant]
     Indication: DEPRESSION

REACTIONS (5)
  - Systemic lupus erythematosus [Unknown]
  - Cerebrovascular accident [Not Recovered/Not Resolved]
  - Arthritis [Unknown]
  - Crohn^s disease [Unknown]
  - Rectal abscess [Unknown]
